FAERS Safety Report 4838942-5 (Version None)
Quarter: 2005Q4

REPORT INFORMATION
  Report Type: 
  Country: None (occurrence: None)
  Receive Date: 20051129
  Receipt Date: 20050608
  Transmission Date: 20060501
  Serious: No
  Sender: FDA-Public Use
  Company Number: US-GLAXOSMITHKLINE-A0561987A

PATIENT
  Age: 62 Year
  Sex: Female
  Weight: 78 kg

DRUGS (3)
  1. COMMIT [Suspect]
  2. LIPITOR [Concomitant]
  3. ZOLOFT [Concomitant]

REACTIONS (2)
  - DRUG ABUSER [None]
  - METABOLIC SYNDROME [None]
